FAERS Safety Report 8044234-6 (Version None)
Quarter: 2012Q1

REPORT INFORMATION
  Report Type: 
  Country: None (occurrence: None)
  Receive Date: 20120113
  Receipt Date: 20120106
  Transmission Date: 20120608
  Serious: Yes (Hospitalization)
  Sender: FDA-Public Use
  Company Number: US-AMGEN-USASP2012000884

PATIENT
  Age: 77 Year
  Sex: Female

DRUGS (1)
  1. ENBREL [Suspect]
     Indication: RHEUMATOID ARTHRITIS
     Dosage: 50 MG, QWK
     Dates: start: 20080101

REACTIONS (9)
  - WOUND INFECTION [None]
  - GAIT DISTURBANCE [None]
  - INFLUENZA [None]
  - FALL [None]
  - INFECTION [None]
  - IMPAIRED HEALING [None]
  - NAUSEA [None]
  - RHEUMATOID ARTHRITIS [None]
  - TENDON RUPTURE [None]
